FAERS Safety Report 9426925 (Version 2)
Quarter: 2013Q3

REPORT INFORMATION
  Report Type: Spontaneous
  Country: US (occurrence: US)
  Receive Date: 20130730
  Receipt Date: 20130820
  Transmission Date: 20140515
  Serious: Yes (Death)
  Sender: FDA-Public Use
  Company Number: US-ASTELLAS-2013US007813

PATIENT
  Sex: Male

DRUGS (10)
  1. XTANDI [Suspect]
     Indication: PROSTATE CANCER
     Dosage: 160 MG, UID/QD
     Route: 048
     Dates: start: 20130314, end: 20130701
  2. ADVIL                              /00109201/ [Concomitant]
     Indication: PAIN
     Dosage: 400 MG, PRN
     Route: 048
  3. DEXAMETHASONE [Concomitant]
     Indication: PRODUCT USED FOR UNKNOWN INDICATION
     Dosage: 4 MG, UID/QD
     Route: 048
  4. DIFLUCAN [Concomitant]
     Indication: PRODUCT USED FOR UNKNOWN INDICATION
     Dosage: 50 MG, UID/QD
     Route: 048
  5. LATANOPROST [Concomitant]
     Indication: PRODUCT USED FOR UNKNOWN INDICATION
     Dosage: 0.005 %, UID/QD
     Route: 047
  6. MEGACE [Concomitant]
     Indication: PRODUCT USED FOR UNKNOWN INDICATION
     Dosage: 5 ML, PRN
     Route: 048
  7. MULTIVITAMINS WITH MINERALS        /90003801/ [Concomitant]
     Indication: PRODUCT USED FOR UNKNOWN INDICATION
     Dosage: 1 UNK, UID/QD
     Route: 048
  8. NORCO [Concomitant]
     Indication: PAIN
     Dosage: 325 MG, PRN
     Route: 048
  9. PEPCID                             /00706001/ [Concomitant]
     Indication: PRODUCT USED FOR UNKNOWN INDICATION
     Dosage: 20 MG, BID
     Route: 048
  10. ZOFRAN                             /00955301/ [Concomitant]
     Indication: NAUSEA
     Dosage: 4 MG, PRN
     Route: 048

REACTIONS (1)
  - Malignant neoplasm progression [Fatal]
